FAERS Safety Report 4749812-5 (Version None)
Quarter: 2005Q3

REPORT INFORMATION
  Report Type: 
  Country: None (occurrence: None)
  Receive Date: 20050819
  Receipt Date: 20050819
  Transmission Date: 20060218
  Serious: Yes (Disabling)
  Sender: FDA-Public Use
  Company Number: None

PATIENT
  Age: 69 Year
  Sex: Male
  Weight: 96.6162 kg

DRUGS (3)
  1. METOPROLOL [Suspect]
     Indication: HEART RATE INCREASED
     Dosage: 25MG EACH MORNING AND 25MG EACH EVENING
     Dates: start: 20010101, end: 20050201
  2. ASPIRIN [Concomitant]
  3. ASCORBIC ACID [Concomitant]

REACTIONS (5)
  - ASTHENIA [None]
  - CARDIAC DISORDER [None]
  - CHEST PAIN [None]
  - GAIT DISTURBANCE [None]
  - HEART RATE DECREASED [None]
